FAERS Safety Report 12501545 (Version 1)
Quarter: 2016Q2

REPORT INFORMATION
  Report Type: Spontaneous
  Country: US (occurrence: US)
  Receive Date: 20160627
  Receipt Date: 20160627
  Transmission Date: 20160815
  Serious: No
  Sender: FDA-Public Use
  Company Number: US-DSJP-DSU-2015-122929

PATIENT
  Age: 57 Year
  Sex: Female
  Weight: 70.3 kg

DRUGS (6)
  1. GENERIC FOR PROTONIX [Concomitant]
     Indication: PRODUCT USED FOR UNKNOWN INDICATION
     Dosage: UNK
  2. WELCHOL [Suspect]
     Active Substance: COLESEVELAM HYDROCHLORIDE
     Indication: BILE OUTPUT INCREASED
     Dosage: 1875 MG, QD
     Route: 048
     Dates: start: 201405, end: 201411
  3. GENERIC FOR EFFEXOR [Concomitant]
     Indication: PRODUCT USED FOR UNKNOWN INDICATION
     Dosage: 75 MG, QOD
  4. PRAVASTATIN [Concomitant]
     Active Substance: PRAVASTATIN\PRAVASTATIN SODIUM
     Indication: PRODUCT USED FOR UNKNOWN INDICATION
     Dosage: UNK
  5. WELCHOL [Suspect]
     Active Substance: COLESEVELAM HYDROCHLORIDE
     Dosage: 1875 MG, QD
     Route: 048
     Dates: start: 201504
  6. GENERIC FOR NORVASC [Concomitant]
     Indication: HYPERTENSION
     Dosage: UNK

REACTIONS (2)
  - No adverse event [Not Recovered/Not Resolved]
  - Off label use [Not Recovered/Not Resolved]

NARRATIVE: CASE EVENT DATE: 201405
